FAERS Safety Report 9414083 (Version 3)
Quarter: 2016Q1

REPORT INFORMATION
  Report Type: Report from Study
  Country: US (occurrence: US)
  Receive Date: 20130723
  Receipt Date: 20160301
  Transmission Date: 20160526
  Serious: Yes (Death)
  Sender: FDA-Public Use
  Company Number: US-ROCHE-1251707

PATIENT
  Age: 40 Year
  Sex: Female

DRUGS (7)
  1. SODIUM BICARBONATE. [Concomitant]
     Active Substance: SODIUM BICARBONATE
  2. ACTIVASE [Suspect]
     Active Substance: ALTEPLASE
     Indication: PULMONARY EMBOLISM
     Route: 065
     Dates: start: 20130722, end: 20130722
  3. ATROPINE. [Concomitant]
     Active Substance: ATROPINE
  4. EPINEPHRINE. [Concomitant]
     Active Substance: EPINEPHRINE
  5. ACTIVASE [Suspect]
     Active Substance: ALTEPLASE
     Indication: INFARCTION
  6. ACTIVASE [Suspect]
     Active Substance: ALTEPLASE
     Indication: RESUSCITATION
  7. ACTIVASE [Suspect]
     Active Substance: ALTEPLASE
     Indication: CEREBROVASCULAR ACCIDENT
     Route: 065
     Dates: start: 20130722, end: 20130722

REACTIONS (1)
  - Death [Fatal]

NARRATIVE: CASE EVENT DATE: 20130722
